FAERS Safety Report 14786028 (Version 2)
Quarter: 2018Q2

REPORT INFORMATION
  Report Type: Spontaneous
  Country: BE (occurrence: BE)
  Receive Date: 20180420
  Receipt Date: 20180424
  Transmission Date: 20180711
  Serious: Yes (Life-Threatening, Hospitalization, Other)
  Sender: FDA-Public Use
  Company Number: BE-PFIZER INC-2018155408

PATIENT
  Age: 51 Year
  Sex: Female

DRUGS (2)
  1. AMIODARONE HCL [Suspect]
     Active Substance: AMIODARONE HYDROCHLORIDE
     Indication: CONGESTIVE CARDIOMYOPATHY
     Dosage: UNK
     Route: 065
  2. AMIODARONE HCL [Suspect]
     Active Substance: AMIODARONE HYDROCHLORIDE
     Dosage: UNK
     Route: 065

REACTIONS (4)
  - Hyperthyroidism [Recovered/Resolved]
  - Cardiogenic shock [Recovered/Resolved]
  - Disease recurrence [Recovered/Resolved]
  - Cardiac failure [Recovered/Resolved]
